FAERS Safety Report 24528227 (Version 1)
Quarter: 2024Q4

REPORT INFORMATION
  Report Type: Spontaneous
  Country: US (occurrence: None)
  Receive Date: 20241018
  Receipt Date: 20241018
  Transmission Date: 20250115
  Serious: Yes (Life-Threatening, Hospitalization)
  Sender: Public
  Company Number: None

PATIENT
  Age: 71 Year
  Sex: Male
  Weight: 99 kg

DRUGS (2)
  1. SILDENAFIL CITRATE [Suspect]
     Active Substance: SILDENAFIL CITRATE
     Dosage: FREQUENCY : AS NEEDED;?
     Route: 048
  2. YOHIMBINE [Suspect]
     Active Substance: YOHIMBINE

REACTIONS (5)
  - Cardiac arrest [None]
  - Hypotension [None]
  - Tachycardia [None]
  - Vomiting [None]
  - Aspiration [None]

NARRATIVE: CASE EVENT DATE: 20240415
